FAERS Safety Report 24549351 (Version 1)
Quarter: 2024Q4

REPORT INFORMATION
  Report Type: Spontaneous
  Country: US (occurrence: None)
  Receive Date: 20241024
  Receipt Date: 20241024
  Transmission Date: 20250115
  Serious: Yes (Other)
  Sender: Public
  Company Number: None

PATIENT
  Age: 53 Year
  Sex: Female

DRUGS (1)
  1. KISQALI [Suspect]
     Active Substance: RIBOCICLIB
     Indication: Breast cancer female
     Dosage: FREQUENCY : AS DIRECTED; DAILY FOR 21 DAYS THEN 7 DAYS OFF?

REACTIONS (3)
  - Diarrhoea [None]
  - Rash [None]
  - Therapy interrupted [None]
